FAERS Safety Report 5956813-8 (Version None)
Quarter: 2008Q4

REPORT INFORMATION
  Report Type: 
  Country: None (occurrence: None)
  Receive Date: 20081114
  Receipt Date: 20081114
  Transmission Date: 20090506
  Serious: Yes (Other)
  Sender: FDA-Public Use
  Company Number: None

PATIENT
  Age: 62 Year
  Sex: Male
  Weight: 104.3273 kg

DRUGS (1)
  1. DOXYCYCLNE 50MG MUTUAL PHARMACEUTICAL CO. [Suspect]
     Indication: GINGIVITIS
     Dosage: 25 MG BID INJ
     Route: 058
     Dates: start: 20081007, end: 20081017

REACTIONS (1)
  - VERTIGO POSITIONAL [None]
